FAERS Safety Report 20274542 (Version 1)
Quarter: 2022Q1

REPORT INFORMATION
  Report Type: Spontaneous
  Country: US (occurrence: US)
  Receive Date: 20220102
  Receipt Date: 20220102
  Transmission Date: 20220423
  Serious: Yes (Death, Hospitalization)
  Sender: FDA-Public Use
  Company Number: US-DSJP-DSU-2021-144000

PATIENT
  Age: 53 Year
  Sex: Female

DRUGS (2)
  1. AMLODIPINE BESYLATE\HYDROCHLOROTHIAZIDE\OLMESARTAN MEDOXOMIL [Suspect]
     Active Substance: AMLODIPINE BESYLATE\HYDROCHLOROTHIAZIDE\OLMESARTAN MEDOXOMIL
     Indication: Suicide attempt
     Dosage: 20 DF, TOTAL
     Route: 048
  2. ALCOHOL [Suspect]
     Active Substance: ALCOHOL
     Indication: Suicide attempt
     Dosage: 1 BOTTLE, TOTAL
     Route: 048

REACTIONS (16)
  - Toxicity to various agents [Fatal]
  - Vomiting [Unknown]
  - Altered state of consciousness [Unknown]
  - Confusional state [Unknown]
  - Agitation [Unknown]
  - Dysarthria [Unknown]
  - Hyporesponsive to stimuli [Unknown]
  - Hypoxia [Unknown]
  - Pulseless electrical activity [Unknown]
  - Nodal rhythm [Unknown]
  - Sinus tachycardia [Unknown]
  - Hypothermia [Unknown]
  - Acidosis [Unknown]
  - Hypotension [Unknown]
  - Unresponsive to stimuli [Unknown]
  - Blood lactic acid increased [Unknown]
